FAERS Safety Report 8214128-1 (Version None)
Quarter: 2012Q1

REPORT INFORMATION
  Report Type: 
  Country: None (occurrence: None)
  Receive Date: 20120314
  Receipt Date: 20120314
  Transmission Date: 20120608
  Serious: Yes (Hospitalization)
  Sender: FDA-Public Use
  Company Number: None

PATIENT
  Age: 72 Year
  Sex: Female
  Weight: 80 kg

DRUGS (14)
  1. METOPROLOL SUCCINATE [Concomitant]
  2. MAG GLUC [Concomitant]
  3. ASPIRIN [Concomitant]
  4. GLUCOSAMINE CHONDROITIN [Concomitant]
  5. IBUPROFEN [Concomitant]
  6. HYDROCHLOROTHIAZIDE [Concomitant]
  7. AZOPT [Concomitant]
  8. LOTREL [Concomitant]
  9. CA + VIT D [Concomitant]
  10. POTASSIUM [Concomitant]
  11. COMBIGAN [Concomitant]
  12. TRAVATAN [Concomitant]
  13. HYDROCODONE BITARTRATE AND ACETAMINOPHEN [Suspect]
     Indication: PAIN
     Dosage: 15MG ONCE PO RECENT
     Route: 048
  14. SUPRABRITE HERBAL SUPPLEMENTS [Concomitant]

REACTIONS (3)
  - SOMNOLENCE [None]
  - HYPOXIA [None]
  - HYPOVENTILATION [None]
